FAERS Safety Report 20853836 (Version 3)
Quarter: 2022Q3

REPORT INFORMATION
  Report Type: Report from Study
  Country: ES (occurrence: ES)
  Receive Date: 20220520
  Receipt Date: 20220715
  Transmission Date: 20221027
  Serious: Yes (Hospitalization, Other)
  Sender: FDA-Public Use
  Company Number: ES-GLAXOSMITHKLINE-ES2022EME047545

PATIENT

DRUGS (1)
  1. BELANTAMAB MAFODOTIN [Suspect]
     Active Substance: BELANTAMAB MAFODOTIN
     Indication: Plasma cell myeloma
     Dosage: 100 MG
     Dates: start: 202009, end: 20220511

REACTIONS (13)
  - Necrosis [Not Recovered/Not Resolved]
  - Femur fracture [Recovering/Resolving]
  - Pyrexia [Recovering/Resolving]
  - Localised infection [Recovered/Resolved]
  - Nail infection [Recovered/Resolved]
  - Oral discomfort [Not Recovered/Not Resolved]
  - Cyst [Not Recovered/Not Resolved]
  - Visual impairment [Not Recovered/Not Resolved]
  - Vision blurred [Not Recovered/Not Resolved]
  - Pain [Unknown]
  - Bone disorder [Not Recovered/Not Resolved]
  - Incorrect product administration duration [Unknown]
  - Drug effect less than expected [Not Recovered/Not Resolved]

NARRATIVE: CASE EVENT DATE: 20200901
